FAERS Safety Report 5183435-1 (Version None)
Quarter: 2006Q4

REPORT INFORMATION
  Report Type: 
  Country: None (occurrence: None)
  Receive Date: 20061220
  Receipt Date: 20060112
  Transmission Date: 20070319
  Serious: Yes (Other)
  Sender: FDA-Public Use
  Company Number: US-GLAXOSMITHKLINE-A0588963A

PATIENT
  Age: 70 Year
  Sex: Male

DRUGS (1)
  1. NICODERM CQ [Suspect]
     Dosage: 7MG UNKNOWN

REACTIONS (3)
  - ASTHENIA [None]
  - DEPRESSION [None]
  - DRUG ABUSER [None]
